FAERS Safety Report 16892686 (Version 3)
Quarter: 2019Q4

REPORT INFORMATION
  Report Type: Spontaneous
  Country: ES (occurrence: ES)
  Receive Date: 20191007
  Receipt Date: 20191024
  Transmission Date: 20200122
  Serious: Yes (Hospitalization, Other)
  Sender: FDA-Public Use
  Company Number: ES-PFIZER INC-2019427262

PATIENT
  Age: 58 Year
  Sex: Female

DRUGS (1)
  1. CRIZOTINIB [Suspect]
     Active Substance: CRIZOTINIB
     Indication: LUNG ADENOCARCINOMA
     Dosage: 250 MG, 2X/DAY (250 MG/12 HOURS)
     Route: 048
     Dates: start: 20190122, end: 20190226

REACTIONS (10)
  - Chest pain [Unknown]
  - Nausea [Unknown]
  - Dyspnoea [Recovered/Resolved]
  - Vomiting [Unknown]
  - Hepatic failure [Recovered/Resolved]
  - Cough [Recovered/Resolved]
  - Oedema peripheral [Unknown]
  - Epistaxis [Unknown]
  - Glomerulonephritis [Unknown]
  - Neoplasm progression [Unknown]

NARRATIVE: CASE EVENT DATE: 2019
